FAERS Safety Report 4937672-9 (Version None)
Quarter: 2006Q1

REPORT INFORMATION
  Report Type: 
  Country: None (occurrence: None)
  Receive Date: 20060309
  Receipt Date: 20050221
  Transmission Date: 20060701
  Serious: Yes (Other)
  Sender: FDA-Public Use
  Company Number: CH-MERCK-0502CHE00024

PATIENT
  Age: 55 Year
  Sex: Male
  Weight: 62 kg

DRUGS (1)
  1. VIOXX [Suspect]
     Indication: ARTHRALGIA
     Route: 048
     Dates: start: 20000101

REACTIONS (1)
  - CEREBRAL INFARCTION [None]
